FAERS Safety Report 25242321 (Version 2)
Quarter: 2025Q3

REPORT INFORMATION
  Report Type: Spontaneous
  Country: CA (occurrence: CA)
  Receive Date: 20250427
  Receipt Date: 20250810
  Transmission Date: 20251021
  Serious: Yes (Other)
  Sender: ALEXION PHARMACEUTICALS
  Company Number: E2B_07599804

PATIENT
  Sex: Female

DRUGS (2)
  1. LYNPARZA [Suspect]
     Active Substance: OLAPARIB
     Indication: Product used for unknown indication
  2. APIXABAN [Concomitant]
     Active Substance: APIXABAN
     Indication: Neoplasm malignant

REACTIONS (4)
  - Carbohydrate antigen 125 increased [Unknown]
  - Neoplasm malignant [Unknown]
  - Peritoneal disorder [Unknown]
  - Pulmonary embolism [Unknown]
